FAERS Safety Report 16085475 (Version 1)
Quarter: 2019Q1

REPORT INFORMATION
  Report Type: Spontaneous
  Country: US (occurrence: US)
  Receive Date: 20190318
  Receipt Date: 20190318
  Transmission Date: 20190418
  Serious: Yes (Death, Other)
  Sender: FDA-Public Use
  Company Number: US-GILEAD-2019-0396342

PATIENT
  Age: 65 Year
  Sex: Male

DRUGS (1)
  1. YESCARTA [Suspect]
     Active Substance: AXICABTAGENE CILOLEUCEL
     Indication: DIFFUSE LARGE B-CELL LYMPHOMA
     Dosage: UNK
     Route: 042
     Dates: start: 20190208, end: 20190208

REACTIONS (8)
  - Cytokine release syndrome [Unknown]
  - Aspergillus infection [Unknown]
  - Blood fibrinogen decreased [Unknown]
  - Neurotoxicity [Unknown]
  - Abdominal pain [Unknown]
  - Diffuse large B-cell lymphoma [Fatal]
  - Disseminated intravascular coagulation [Unknown]
  - Febrile neutropenia [Unknown]

NARRATIVE: CASE EVENT DATE: 201902
